FAERS Safety Report 6748377-6 (Version None)
Quarter: 2010Q2

REPORT INFORMATION
  Report Type: 
  Country: None (occurrence: None)
  Receive Date: 20100601
  Receipt Date: 20100521
  Transmission Date: 20101027
  Serious: No
  Sender: FDA-Public Use
  Company Number: 2009BI038874

PATIENT
  Age: 53 Year
  Sex: Female

DRUGS (3)
  1. TYSABRI [Suspect]
     Indication: MULTIPLE SCLEROSIS
     Route: 042
     Dates: start: 20071210, end: 20090101
  2. TYSABRI [Suspect]
     Route: 042
     Dates: start: 20090101, end: 20100101
  3. TYSABRI [Suspect]
     Route: 042
     Dates: start: 20100101

REACTIONS (4)
  - ASTHENIA [None]
  - GAIT DISTURBANCE [None]
  - MOBILITY DECREASED [None]
  - NAUSEA [None]
